FAERS Safety Report 5512650-X (Version None)
Quarter: 2007Q4

REPORT INFORMATION
  Report Type: 
  Country: None (occurrence: None)
  Receive Date: 20071108
  Receipt Date: 20071108
  Transmission Date: 20080405
  Serious: Yes (Other)
  Sender: FDA-Public Use
  Company Number: None

PATIENT
  Sex: Male
  Weight: 79.3795 kg

DRUGS (1)
  1. LORAZEPAM [Suspect]
     Indication: ANXIETY
     Dosage: UP TO 2 TABS DAILY PO
     Route: 048
     Dates: start: 20071002, end: 20071106

REACTIONS (1)
  - PHARMACEUTICAL PRODUCT COMPLAINT [None]
